FAERS Safety Report 21088264 (Version 1)
Quarter: 2022Q3

REPORT INFORMATION
  Report Type: Spontaneous
  Country: US (occurrence: US)
  Receive Date: 20220715
  Receipt Date: 20220715
  Transmission Date: 20221026
  Serious: No
  Sender: FDA-Public Use
  Company Number: US-ORGANON-O2207USA000397

PATIENT
  Age: 9 Year
  Sex: Male

DRUGS (9)
  1. SINGULAIR [Suspect]
     Active Substance: MONTELUKAST SODIUM
     Indication: Asthma
     Dosage: 4 MG TABLET AT NIGHT
     Route: 048
  2. FLUTICASONE PROPIONATE [Suspect]
     Active Substance: FLUTICASONE PROPIONATE
     Indication: Asthma
     Dosage: 44 MICROGRAM (?G), 1 PUFF TWICE DAILY
  3. FLUTICASONE PROPIONATE [Suspect]
     Active Substance: FLUTICASONE PROPIONATE
     Dosage: 44 ?G, 2 PUFFS TWICE DAILY
  4. ALBUTEROL [Suspect]
     Active Substance: ALBUTEROL
     Indication: Asthma
     Dosage: 1-2 PUFFS, AS NEEDED
  5. ALBUTEROL [Suspect]
     Active Substance: ALBUTEROL
     Dosage: 1-2 PUFFS, OVER 7 TIMES A WEEK
  6. ALBUTEROL [Suspect]
     Active Substance: ALBUTEROL
     Dosage: 2 PUFF, THRICE DAILY
  7. PREDNISONE [Concomitant]
     Active Substance: PREDNISONE
     Indication: Asthma
     Dosage: 20 MILLIGRAM FOR 3 DAYS
     Route: 048
  8. PREDNISONE [Concomitant]
     Active Substance: PREDNISONE
     Dosage: 10 MILLIGRAM FOR 3 DAYS
     Route: 048
  9. VALPROATE SODIUM [Concomitant]
     Active Substance: VALPROATE SODIUM
     Dosage: 25 MG/KG

REACTIONS (1)
  - Drug ineffective [Unknown]
